FAERS Safety Report 11730447 (Version 1)
Quarter: 2015Q4

REPORT INFORMATION
  Report Type: Spontaneous
  Country: US (occurrence: US)
  Receive Date: 20151110
  Receipt Date: 20151110
  Transmission Date: 20160304
  Serious: No
  Sender: FDA-Public Use
  Company Number: US-ELI_LILLY_AND_COMPANY-US201201003933

PATIENT
  Age: 62 Year
  Sex: Female

DRUGS (2)
  1. FORTEO [Suspect]
     Active Substance: TERIPARATIDE
     Dosage: 20 UG, QD
     Route: 065
     Dates: start: 201201
  2. FORTEO [Suspect]
     Active Substance: TERIPARATIDE
     Indication: OSTEOPOROSIS
     Dosage: 20 UG, QD
     Route: 065
     Dates: start: 20120103, end: 20120116

REACTIONS (9)
  - Flushing [Recovered/Resolved]
  - Face oedema [Recovered/Resolved]
  - Nausea [Unknown]
  - Rash pruritic [Recovered/Resolved]
  - Arthralgia [Unknown]
  - Arthralgia [Recovered/Resolved]
  - Pain [Unknown]
  - Influenza like illness [Unknown]
  - Middle insomnia [Unknown]

NARRATIVE: CASE EVENT DATE: 20120108
